FAERS Safety Report 8995463 (Version 1)
Quarter: 2013Q1

REPORT INFORMATION
  Report Type: Spontaneous
  Country: US (occurrence: US)
  Receive Date: 20130103
  Receipt Date: 20130103
  Transmission Date: 20140127
  Serious: No
  Sender: FDA-Public Use
  Company Number: US-ABBOTT-12P-163-0955549-00

PATIENT
  Sex: 0

DRUGS (4)
  1. SYNTHROID [Suspect]
     Indication: HYPOTHYROIDISM
     Dates: start: 1982
  2. SYNTHROID [Suspect]
  3. LEVOXYL [Suspect]
     Indication: PRODUCT USED FOR UNKNOWN INDICATION
  4. PREMARIN [Concomitant]
     Indication: PRODUCT USED FOR UNKNOWN INDICATION

REACTIONS (4)
  - Coeliac disease [Not Recovered/Not Resolved]
  - Eye pain [Not Recovered/Not Resolved]
  - Thyroid function test abnormal [Recovered/Resolved]
  - Hypertension [Recovered/Resolved]
